FAERS Safety Report 24376158 (Version 1)
Quarter: 2024Q3

REPORT INFORMATION
  Report Type: Spontaneous
  Country: US (occurrence: None)
  Receive Date: 20240926
  Receipt Date: 20240926
  Transmission Date: 20241016
  Serious: Yes (Hospitalization)
  Sender: Public
  Company Number: None

PATIENT
  Age: 61 Year
  Sex: Male
  Weight: 124 kg

DRUGS (1)
  1. ELIQUIS [Suspect]
     Active Substance: APIXABAN
     Indication: Atrial fibrillation
     Dosage: FREQUENCY : TWICE A DAY;?
     Route: 048
     Dates: start: 20210319

REACTIONS (6)
  - Rectal haemorrhage [None]
  - Therapy interrupted [None]
  - Duodenal polyp [None]
  - Haemorrhoids [None]
  - Oesophageal candidiasis [None]
  - Incision site haemorrhage [None]

NARRATIVE: CASE EVENT DATE: 20230402
